FAERS Safety Report 5597503-3 (Version None)
Quarter: 2008Q1

REPORT INFORMATION
  Report Type: 
  Country: None (occurrence: None)
  Receive Date: 20080121
  Receipt Date: 20080114
  Transmission Date: 20080703
  Serious: Yes (Hospitalization)
  Sender: FDA-Public Use
  Company Number: PHRM2008FR00582

PATIENT
  Age: 80 Year
  Sex: Female

DRUGS (9)
  1. LUDIOMIL 75 [Suspect]
     Indication: DEPRESSION
     Dosage: 37.5 MG/DAY
     Route: 048
     Dates: end: 20071012
  2. ZOLOFT [Suspect]
     Indication: DEPRESSION
     Dosage: 2 DF/DAY
     Route: 048
     Dates: end: 20071015
  3. STILNOX                                 /FRA/ [Suspect]
     Indication: INSOMNIA
     Dosage: 10 MG/DAY
     Route: 048
     Dates: end: 20071013
  4. ESBERIVEN [Suspect]
     Dosage: 1 DF/DAY
     Route: 048
     Dates: end: 20071012
  5. CERVOXAN [Suspect]
     Route: 048
     Dates: start: 20071005, end: 20071013
  6. POLY-KARAYA [Concomitant]
     Indication: GASTROINTESTINAL DISORDER
     Dosage: 3 DF/DAY
     Route: 048
     Dates: end: 20071013
  7. ELISOR [Concomitant]
     Dosage: 20 MG/DAY
     Route: 048
  8. NOCTAMID [Concomitant]
     Dosage: 1 MG/DAY
     Route: 048
  9. ALPHAGAN [Concomitant]
     Dates: end: 20071013

REACTIONS (8)
  - DEPRESSION [None]
  - DRUG INTERACTION [None]
  - EXCORIATION [None]
  - FALL [None]
  - INFLAMMATION [None]
  - ORTHOSTATIC HYPOTENSION [None]
  - PERIORBITAL HAEMATOMA [None]
  - SUICIDAL IDEATION [None]
